FAERS Safety Report 8524283-1 (Version None)
Quarter: 2012Q3

REPORT INFORMATION
  Report Type: 
  Country: None (occurrence: None)
  Receive Date: 20120720
  Receipt Date: 20120711
  Transmission Date: 20120928
  Serious: Yes (Other)
  Sender: FDA-Public Use
  Company Number: US-ABBOTT-12P-163-0955015-00

PATIENT
  Sex: Female
  Weight: 99.426 kg

DRUGS (10)
  1. NITROGLYCERIN [Concomitant]
     Indication: CHEST PAIN
     Route: 060
  2. XANAX [Concomitant]
     Indication: ANXIETY
     Route: 048
  3. PHENTERMINE [Concomitant]
     Indication: WEIGHT DECREASED
     Dates: start: 20120401
  4. NIASPAN [Suspect]
     Indication: TYPE IIA HYPERLIPIDAEMIA
     Dosage: DAILY, AT BEDTIME
     Route: 048
     Dates: start: 19980101
  5. COREG [Concomitant]
     Indication: PRODUCT USED FOR UNKNOWN INDICATION
     Route: 048
  6. LASIX [Concomitant]
     Indication: PRODUCT USED FOR UNKNOWN INDICATION
     Route: 048
  7. LOSARTAN POTASSIUM [Concomitant]
     Indication: PRODUCT USED FOR UNKNOWN INDICATION
     Route: 048
  8. ZETIA [Concomitant]
     Indication: PRODUCT USED FOR UNKNOWN INDICATION
     Dosage: DAILY, AT BEDTIME
     Route: 048
  9. LIPITOR [Concomitant]
     Indication: PRODUCT USED FOR UNKNOWN INDICATION
     Dosage: DAILY, AT BEDTIME
     Route: 048
  10. ASPIRIN [Concomitant]
     Indication: PRODUCT USED FOR UNKNOWN INDICATION
     Dosage: DAILY, AT BEDTIME
     Route: 048

REACTIONS (10)
  - BLOOD CHOLESTEROL ABNORMAL [None]
  - CORONARY ARTERY BYPASS [None]
  - EPISTAXIS [None]
  - LOW DENSITY LIPOPROTEIN ABNORMAL [None]
  - FLUSHING [None]
  - CORONARY ARTERIAL STENT INSERTION [None]
  - CHEST PAIN [None]
  - GLYCOSYLATED HAEMOGLOBIN INCREASED [None]
  - DIABETES MELLITUS [None]
  - HIGH DENSITY LIPOPROTEIN ABNORMAL [None]
